FAERS Safety Report 8227680-7 (Version None)
Quarter: 2012Q1

REPORT INFORMATION
  Report Type: 
  Country: None (occurrence: None)
  Receive Date: 20120322
  Receipt Date: 20120315
  Transmission Date: 20120608
  Serious: Yes (Hospitalization)
  Sender: FDA-Public Use
  Company Number: US-PFIZER INC-2012069776

PATIENT
  Age: 62 Year
  Sex: Female

DRUGS (5)
  1. NAFCILLIN [Concomitant]
     Route: 042
  2. RIFAMPICIN [Suspect]
     Dosage: 60 MG/KG, 1X/DAY
     Route: 048
  3. CLOZAPINE [Concomitant]
     Dosage: 300 MG, 1X/DAY
  4. VALPROIC ACID [Interacting]
     Dosage: 2250 MG, 1X/DAY
  5. OLANZAPINE [Concomitant]
     Dosage: 5 MG, 1X/DAY

REACTIONS (6)
  - ANKLE FRACTURE [None]
  - DRUG INTERACTION [None]
  - DEVICE RELATED INFECTION [None]
  - ANTICONVULSANT DRUG LEVEL [None]
  - SUICIDAL IDEATION [None]
  - ANTICONVULSANT DRUG LEVEL ABNORMAL [None]
